FAERS Safety Report 8280014 (Version 2)
Quarter: 2012Q4

REPORT INFORMATION
  Report Type: Report from Study
  Country: FR (occurrence: FR)
  Receive Date: 20111208
  Receipt Date: 20121107
  Transmission Date: 20130627
  Serious: Yes (Hospitalization)
  Sender: FDA-Public Use
  Company Number: FR-ROCHE-1018864

PATIENT
  Age: 76 Year
  Sex: Female
  Weight: 60 kg

DRUGS (5)
  1. MYCOPHENOLATE MOFETIL [Suspect]
     Indication: TRANSPLANT REJECTION
     Route: 048
     Dates: start: 20111106
  2. MYCOPHENOLATE MOFETIL [Suspect]
     Dosage: Dose reduced
     Route: 048
  3. CYCLOSPORINE [Suspect]
     Indication: TRANSPLANT REJECTION
     Route: 048
     Dates: start: 20111106, end: 20111230
  4. CYCLOSPORINE [Suspect]
     Dosage: dose reduced
     Route: 048
  5. PREDNISOLONE SODIUM METASULFOBENZOATE [Suspect]
     Indication: TRANSPLANT REJECTION
     Route: 048
     Dates: start: 20111112, end: 20111113

REACTIONS (8)
  - General physical health deterioration [Recovering/Resolving]
  - Renal impairment [Recovered/Resolved]
  - Anaemia [Recovering/Resolving]
  - Anaemia [None]
  - Gastritis erosive [None]
  - Duodenitis [None]
  - Nausea [None]
  - Weight decreased [None]
